FAERS Safety Report 18315489 (Version 1)
Quarter: 2020Q3

REPORT INFORMATION
  Report Type: Other
  Country: IT (occurrence: IT)
  Receive Date: 20200926
  Receipt Date: 20200926
  Transmission Date: 20201103
  Serious: Yes (Disabling)
  Sender: FDA-Public Use
  Company Number: IT-MACLEODS PHARMACEUTICALS US LTD-MAC2020028158

PATIENT

DRUGS (1)
  1. LEVOFLOXACIN 500 MG TABLET [Suspect]
     Active Substance: LEVOFLOXACIN
     Indication: BACTERIAL URETHRITIS
     Dosage: 500 MILLIGRAM, QD
     Route: 048
     Dates: start: 20200907, end: 20200909

REACTIONS (3)
  - Burning sensation [Unknown]
  - Tendonitis [Unknown]
  - Respiratory fatigue [Unknown]

NARRATIVE: CASE EVENT DATE: 20200909
